FAERS Safety Report 9137158 (Version 1)
Quarter: 2013Q1

REPORT INFORMATION
  Report Type: Spontaneous
  Country: US (occurrence: US)
  Receive Date: 20130219
  Receipt Date: 20130219
  Transmission Date: 20140127
  Serious: No
  Sender: FDA-Public Use
  Company Number: US-BRISTOL-MYERS SQUIBB COMPANY-17133463

PATIENT
  Age: 50 Year
  Sex: Female
  Weight: 69.39 kg

DRUGS (2)
  1. ORENCIA FOR INJ [Suspect]
     Indication: RHEUMATOID ARTHRITIS
     Dosage: DATE OF LAST INJECTION: OCT2012 ALSO TAKEN 250MG
     Route: 058
     Dates: start: 201210
  2. PREDNISONE [Concomitant]

REACTIONS (5)
  - Bronchitis [Recovered/Resolved]
  - Visual impairment [Recovered/Resolved]
  - Joint swelling [Recovering/Resolving]
  - Hunger [Unknown]
  - Drug ineffective [Unknown]
